FAERS Safety Report 8856505 (Version 1)
Quarter: 2012Q4

REPORT INFORMATION
  Report Type: Spontaneous
  Country: IT (occurrence: None)
  Receive Date: 20121018
  Receipt Date: 20121018
  Transmission Date: 20130627
  Serious: Yes (Hospitalization)
  Sender: FDA-Public Use
  Company Number: AUR-APL-2012-04412

PATIENT
  Age: 63 Year
  Sex: Female

DRUGS (5)
  1. RISPERIDONE (RISPERIDONE) [Suspect]
     Indication: DRUG USE FOR UNKNOWN INDICATION
     Dates: start: 20120930, end: 20121001
  2. DEPAKIN (VALPROATE SODIUM) [Concomitant]
  3. EN (DELORAZEPAM) [Concomitant]
  4. KCL RETARD (POTASSIUM CHLORIDE) [Concomitant]
  5. LEVOPRAID (SULPIRIDE) [Concomitant]

REACTIONS (4)
  - Asthenia [None]
  - Vertigo [None]
  - Dizziness [None]
  - Fatigue [None]
